FAERS Safety Report 26005878 (Version 1)
Quarter: 2025Q4

REPORT INFORMATION
  Report Type: Spontaneous
  Country: TH (occurrence: TH)
  Receive Date: 20251106
  Receipt Date: 20251106
  Transmission Date: 20260118
  Serious: Yes (Life-Threatening, Hospitalization)
  Sender: MYLAN
  Company Number: TH-MYLANLABS-2025M1093540

PATIENT
  Age: 4 Decade
  Sex: Male

DRUGS (44)
  1. PHENYTOIN [Suspect]
     Active Substance: PHENYTOIN
     Indication: Status epilepticus
     Dosage: 1000 MILLIGRAM
  2. PHENYTOIN [Suspect]
     Active Substance: PHENYTOIN
     Indication: Encephalopathy
     Dosage: 1000 MILLIGRAM
     Route: 042
  3. PHENYTOIN [Suspect]
     Active Substance: PHENYTOIN
     Dosage: 1000 MILLIGRAM
     Route: 042
  4. PHENYTOIN [Suspect]
     Active Substance: PHENYTOIN
     Dosage: 1000 MILLIGRAM
  5. PHENYTOIN [Suspect]
     Active Substance: PHENYTOIN
     Indication: Status epilepticus
     Dosage: 300 MILLIGRAM, QD
  6. PHENYTOIN [Suspect]
     Active Substance: PHENYTOIN
     Indication: Encephalopathy
     Dosage: 300 MILLIGRAM, QD
     Route: 065
  7. PHENYTOIN [Suspect]
     Active Substance: PHENYTOIN
     Dosage: 300 MILLIGRAM, QD
     Route: 065
  8. PHENYTOIN [Suspect]
     Active Substance: PHENYTOIN
     Dosage: 300 MILLIGRAM, QD
  9. DIAZEPAM [Suspect]
     Active Substance: DIAZEPAM
     Indication: Status epilepticus
     Dosage: 10 MILLIGRAM, 2X, , FOR TWO TIMES
  10. DIAZEPAM [Suspect]
     Active Substance: DIAZEPAM
     Indication: Encephalopathy
     Dosage: 10 MILLIGRAM, 2X, , FOR TWO TIMES
  11. DIAZEPAM [Suspect]
     Active Substance: DIAZEPAM
     Dosage: 10 MILLIGRAM, 2X, , FOR TWO TIMES
     Route: 042
  12. DIAZEPAM [Suspect]
     Active Substance: DIAZEPAM
     Dosage: 10 MILLIGRAM, 2X, , FOR TWO TIMES
     Route: 042
  13. DIAZEPAM [Suspect]
     Active Substance: DIAZEPAM
     Dosage: 70 MILLIGRAM, BOLUS
  14. DIAZEPAM [Suspect]
     Active Substance: DIAZEPAM
     Dosage: 70 MILLIGRAM, BOLUS
  15. DIAZEPAM [Suspect]
     Active Substance: DIAZEPAM
     Dosage: 70 MILLIGRAM, BOLUS
     Route: 042
  16. DIAZEPAM [Suspect]
     Active Substance: DIAZEPAM
     Dosage: 70 MILLIGRAM, BOLUS
     Route: 042
  17. MIDAZOLAM [Suspect]
     Active Substance: MIDAZOLAM
     Indication: Status epilepticus
     Dosage: 10 MILLIGRAM
  18. MIDAZOLAM [Suspect]
     Active Substance: MIDAZOLAM
     Indication: Encephalopathy
     Dosage: 10 MILLIGRAM
     Route: 042
  19. MIDAZOLAM [Suspect]
     Active Substance: MIDAZOLAM
     Dosage: 10 MILLIGRAM
     Route: 042
  20. MIDAZOLAM [Suspect]
     Active Substance: MIDAZOLAM
     Dosage: 10 MILLIGRAM
  21. MIDAZOLAM [Suspect]
     Active Substance: MIDAZOLAM
     Indication: Status epilepticus
     Dosage: UNK
  22. MIDAZOLAM [Suspect]
     Active Substance: MIDAZOLAM
     Indication: Encephalopathy
     Dosage: UNK
     Route: 065
  23. MIDAZOLAM [Suspect]
     Active Substance: MIDAZOLAM
     Dosage: UNK
     Route: 065
  24. MIDAZOLAM [Suspect]
     Active Substance: MIDAZOLAM
     Dosage: UNK
  25. LEVETIRACETAM [Suspect]
     Active Substance: LEVETIRACETAM
     Indication: Status epilepticus
     Dosage: 2500 MILLIGRAM
  26. LEVETIRACETAM [Suspect]
     Active Substance: LEVETIRACETAM
     Indication: Encephalopathy
     Dosage: 2500 MILLIGRAM
     Route: 042
  27. LEVETIRACETAM [Suspect]
     Active Substance: LEVETIRACETAM
     Dosage: 2500 MILLIGRAM
     Route: 042
  28. LEVETIRACETAM [Suspect]
     Active Substance: LEVETIRACETAM
     Dosage: 2500 MILLIGRAM
  29. LEVETIRACETAM [Suspect]
     Active Substance: LEVETIRACETAM
     Indication: Status epilepticus
     Dosage: UNK
  30. LEVETIRACETAM [Suspect]
     Active Substance: LEVETIRACETAM
     Indication: Encephalopathy
     Dosage: UNK
     Route: 065
  31. LEVETIRACETAM [Suspect]
     Active Substance: LEVETIRACETAM
     Dosage: UNK
     Route: 065
  32. LEVETIRACETAM [Suspect]
     Active Substance: LEVETIRACETAM
     Dosage: UNK
  33. PROPOFOL [Suspect]
     Active Substance: PROPOFOL
     Indication: Status epilepticus
     Dosage: 100 MILLIGRAM
  34. PROPOFOL [Suspect]
     Active Substance: PROPOFOL
     Indication: Encephalopathy
     Dosage: 100 MILLIGRAM
     Route: 042
  35. PROPOFOL [Suspect]
     Active Substance: PROPOFOL
     Dosage: 100 MILLIGRAM
     Route: 042
  36. PROPOFOL [Suspect]
     Active Substance: PROPOFOL
     Dosage: 100 MILLIGRAM
  37. PROPOFOL [Suspect]
     Active Substance: PROPOFOL
     Indication: Status epilepticus
     Dosage: UNK
  38. PROPOFOL [Suspect]
     Active Substance: PROPOFOL
     Indication: Encephalopathy
     Dosage: UNK
     Route: 065
  39. PROPOFOL [Suspect]
     Active Substance: PROPOFOL
     Dosage: UNK
     Route: 065
  40. PROPOFOL [Suspect]
     Active Substance: PROPOFOL
     Dosage: UNK
  41. FENTANYL [Suspect]
     Active Substance: FENTANYL
     Indication: Sedative therapy
     Dosage: 100 MICROGRAM, QH
  42. FENTANYL [Suspect]
     Active Substance: FENTANYL
     Dosage: 100 MICROGRAM, QH
     Route: 065
  43. FENTANYL [Suspect]
     Active Substance: FENTANYL
     Dosage: 100 MICROGRAM, QH
     Route: 065
  44. FENTANYL [Suspect]
     Active Substance: FENTANYL
     Dosage: 100 MICROGRAM, QH

REACTIONS (1)
  - Drug ineffective [Unknown]
